FAERS Safety Report 4836161-X (Version None)
Quarter: 2005Q4

REPORT INFORMATION
  Report Type: 
  Country: None (occurrence: None)
  Receive Date: 20051123
  Receipt Date: 20051116
  Transmission Date: 20060501
  Serious: Yes (Hospitalization)
  Sender: FDA-Public Use
  Company Number: US-JNJFOC-20051104613

PATIENT
  Age: 82 Year
  Sex: Male

DRUGS (1)
  1. DURAGESIC-100 [Suspect]
     Route: 062
     Dates: start: 20030101

REACTIONS (3)
  - ANAEMIA [None]
  - BACTERIAL INFECTION [None]
  - HYPERHIDROSIS [None]
